FAERS Safety Report 15266882 (Version 1)
Quarter: 2018Q3

REPORT INFORMATION
  Report Type: Spontaneous
  Country: US (occurrence: US)
  Receive Date: 20180810
  Receipt Date: 20180810
  Transmission Date: 20181010
  Serious: Yes (Other)
  Sender: FDA-Public Use
  Company Number: PHHY2018US064555

PATIENT
  Age: 46 Year
  Sex: Male

DRUGS (1)
  1. CLOBETASOL [Suspect]
     Active Substance: CLOBETASOL
     Indication: PSORIASIS
     Route: 065

REACTIONS (4)
  - Fatigue [Unknown]
  - Adrenal insufficiency [Unknown]
  - Primary hypogonadism [Unknown]
  - Sexual dysfunction [Unknown]
